FAERS Safety Report 18604453 (Version 1)
Quarter: 2020Q4

REPORT INFORMATION
  Report Type: Spontaneous
  Country: US (occurrence: US)
  Receive Date: 20201211
  Receipt Date: 20201211
  Transmission Date: 20210114
  Serious: Yes (Hospitalization)
  Sender: FDA-Public Use
  Company Number: None

PATIENT
  Age: 52 Year
  Sex: Female
  Weight: 72.5 kg

DRUGS (1)
  1. DECITABINE (5-AZA-2^-DEOXYCYTIDINE) [Suspect]
     Active Substance: DECITABINE
     Dates: end: 20201121

REACTIONS (3)
  - Pseudomonal bacteraemia [None]
  - Staphylococcal bacteraemia [None]
  - Febrile neutropenia [None]

NARRATIVE: CASE EVENT DATE: 20201204
